FAERS Safety Report 7372307-X (Version None)
Quarter: 2011Q1

REPORT INFORMATION
  Report Type: 
  Country: None (occurrence: None)
  Receive Date: 20110324
  Receipt Date: 20110317
  Transmission Date: 20110831
  Serious: Yes (Death, Life-Threatening)
  Sender: FDA-Public Use
  Company Number: B0694439A

PATIENT
  Sex: Female
  Weight: 9.3 kg

DRUGS (7)
  1. ALKERAN [Suspect]
     Indication: STEM CELL TRANSPLANT
     Dosage: 32MG PER DAY
     Route: 042
     Dates: start: 20040319, end: 20040320
  2. BETAMIPRON + PANIPENEM [Concomitant]
     Dosage: 900MG PER DAY
     Route: 042
     Dates: start: 20060327, end: 20090401
  3. FUNGIZONE [Concomitant]
     Dosage: 450MG PER DAY
     Route: 048
     Dates: start: 20060318
  4. PRODIF [Concomitant]
     Dosage: 100MG PER DAY
     Route: 042
     Dates: start: 20060405, end: 20060407
  5. BIFIDOBACTERIUM [Concomitant]
     Dosage: 1MG PER DAY
     Route: 048
     Dates: start: 20060318
  6. ENDOXAN [Concomitant]
     Indication: STEM CELL TRANSPLANT
     Dosage: 700MG PER DAY
     Dates: start: 20040317, end: 20040318
  7. NEUTROGIN [Concomitant]
     Dates: start: 20060323, end: 20060401

REACTIONS (2)
  - RENAL IMPAIRMENT [None]
  - MEDULLOBLASTOMA [None]
